FAERS Safety Report 6675700-3 (Version None)
Quarter: 2010Q2

REPORT INFORMATION
  Report Type: 
  Country: None (occurrence: None)
  Receive Date: 20100409
  Receipt Date: 20100330
  Transmission Date: 20101027
  Serious: Yes (Other)
  Sender: FDA-Public Use
  Company Number: US-ABBOTT-10P-163-0635416-00

PATIENT
  Sex: Female
  Weight: 97.156 kg

DRUGS (6)
  1. TRICOR [Suspect]
     Indication: DRUG USE FOR UNKNOWN INDICATION
  2. LYRICA [Suspect]
     Indication: FIBROMYALGIA
     Dates: start: 20100205
  3. LYRICA [Suspect]
     Indication: PAIN
  4. METFORMIN (GLUCOPHAGE) [Suspect]
     Indication: DRUG USE FOR UNKNOWN INDICATION
     Dosage: 500MG 2 TABLETS TWICE A DAY
  5. CYMBALTA [Suspect]
     Indication: DRUG USE FOR UNKNOWN INDICATION
     Dates: end: 20100205
  6. DIOVAN HCT [Suspect]
     Indication: DRUG USE FOR UNKNOWN INDICATION
     Dosage: 116/12.5 1 DAY

REACTIONS (8)
  - DIABETES MELLITUS INADEQUATE CONTROL [None]
  - DIZZINESS [None]
  - DRUG INEFFECTIVE [None]
  - FIBROMYALGIA [None]
  - HYPERTENSION [None]
  - OEDEMA [None]
  - TREMOR [None]
  - WEIGHT INCREASED [None]
